FAERS Safety Report 4295272-0 (Version None)
Quarter: 2004Q1

REPORT INFORMATION
  Report Type: 
  Country: None (occurrence: None)
  Receive Date: 20040216
  Receipt Date: 20030508
  Transmission Date: 20041129
  Serious: Yes (Other)
  Sender: FDA-Public Use
  Company Number: US-GLAXOSMITHKLINE-A0407801A

PATIENT
  Age: 34 Year
  Sex: Female

DRUGS (3)
  1. LAMICTAL [Suspect]
     Indication: BIPOLAR II DISORDER
     Dosage: 200MG PER DAY
     Route: 048
     Dates: start: 20030101
  2. EFFEXOR [Concomitant]
     Dosage: 75MG PER DAY
     Route: 065
  3. WELLBUTRIN [Concomitant]
     Dosage: 150MG TWICE PER DAY
     Route: 048

REACTIONS (2)
  - DISORIENTATION [None]
  - MANIA [None]
